FAERS Safety Report 11763071 (Version 1)
Quarter: 2015Q4

REPORT INFORMATION
  Report Type: Spontaneous
  Country: US (occurrence: US)
  Receive Date: 20151120
  Receipt Date: 20151120
  Transmission Date: 20160304
  Serious: No
  Sender: FDA-Public Use
  Company Number: US-ELI_LILLY_AND_COMPANY-US201302009359

PATIENT
  Age: 78 Year
  Sex: Female

DRUGS (1)
  1. FORTEO [Suspect]
     Active Substance: TERIPARATIDE
     Indication: FRACTURE
     Dosage: UNK UNK, QD

REACTIONS (5)
  - Malaise [Unknown]
  - Intentional product misuse [Unknown]
  - Muscle spasms [Unknown]
  - Contusion [Unknown]
  - Off label use [Recovered/Resolved]
